FAERS Safety Report 5706364-0 (Version None)
Quarter: 2008Q2

REPORT INFORMATION
  Report Type: 
  Country: None (occurrence: None)
  Receive Date: 20080411
  Receipt Date: 20080331
  Transmission Date: 20081010
  Serious: Yes (Other)
  Sender: FDA-Public Use
  Company Number: 2008AL002084

PATIENT
  Age: 39 Year
  Sex: Female

DRUGS (3)
  1. CARBAMAZEPINE [Suspect]
  2. BACLOFEN [Suspect]
  3. STEROIDS [Concomitant]

REACTIONS (6)
  - ARTHRALGIA [None]
  - DRUG INEFFECTIVE [None]
  - ENDOCARDITIS BACTERIAL [None]
  - FATIGUE [None]
  - NIGHT SWEATS [None]
  - TREMOR [None]
